FAERS Safety Report 5457590-X (Version None)
Quarter: 2007Q3

REPORT INFORMATION
  Report Type: 
  Country: None (occurrence: None)
  Receive Date: 20070918
  Receipt Date: 20070910
  Transmission Date: 20080115
  Serious: No
  Sender: FDA-Public Use
  Company Number: US-BOEHRINGER INGELHEIM PHARMACEUTICALS, INC.-2007-BP-20751BP

PATIENT
  Sex: Male

DRUGS (3)
  1. FLOMAX [Suspect]
     Route: 048
  2. AVODART [Suspect]
  3. CARDURA [Suspect]

REACTIONS (1)
  - HAEMOLYTIC ANAEMIA [None]
